FAERS Safety Report 15067011 (Version 2)
Quarter: 2018Q3

REPORT INFORMATION
  Report Type: Spontaneous
  Country: DE (occurrence: DE)
  Receive Date: 20180626
  Receipt Date: 20180705
  Transmission Date: 20181010
  Serious: Yes (Death, Hospitalization, Other)
  Sender: FDA-Public Use
  Company Number: DE-INTERCEPT-PMOCA2018000989

PATIENT

DRUGS (1)
  1. OCALIVA [Suspect]
     Active Substance: OBETICHOLIC ACID
     Indication: PRIMARY BILIARY CHOLANGITIS
     Dosage: 5 MG, UNK
     Route: 065

REACTIONS (3)
  - Small cell lung cancer [Fatal]
  - Metastases to liver [Not Recovered/Not Resolved]
  - Dyspnoea [Not Recovered/Not Resolved]
